FAERS Safety Report 9540467 (Version 2)
Quarter: 2013Q4

REPORT INFORMATION
  Report Type: Spontaneous
  Country: US (occurrence: US)
  Receive Date: 20130920
  Receipt Date: 20131119
  Transmission Date: 20140711
  Serious: Yes (Other)
  Sender: FDA-Public Use
  Company Number: US-TEVA-432956USA

PATIENT
  Age: 55 Year
  Sex: Female
  Weight: 97.61 kg

DRUGS (6)
  1. AZILECT [Suspect]
     Indication: PARKINSON^S DISEASE
  2. BUMEX [Concomitant]
     Indication: FLUID RETENTION
  3. POTASSIUM [Concomitant]
     Indication: MINERAL SUPPLEMENTATION
  4. ZONEGRAN [Concomitant]
     Indication: TREMOR
  5. UNKNOWN [Concomitant]
     Indication: GASTROOESOPHAGEAL REFLUX DISEASE
  6. UNKNOWN [Concomitant]
     Indication: IRRITABLE BOWEL SYNDROME

REACTIONS (8)
  - Abasia [Unknown]
  - Vomiting [Recovering/Resolving]
  - Nausea [Recovering/Resolving]
  - Balance disorder [Unknown]
  - Asthenia [Unknown]
  - Tremor [Unknown]
  - Abdominal discomfort [Unknown]
  - Dysgeusia [Unknown]
